FAERS Safety Report 22648948 (Version 1)
Quarter: 2023Q2

REPORT INFORMATION
  Report Type: Spontaneous
  Country: AU (occurrence: None)
  Receive Date: 20230628
  Receipt Date: 20230628
  Transmission Date: 20230722
  Serious: Yes (Other)
  Sender: FDA-Public Use
  Company Number: AU-ROCHE-3376889

PATIENT
  Sex: Male

DRUGS (11)
  1. RITUXIMAB [Suspect]
     Active Substance: RITUXIMAB
     Indication: Double hit lymphoma
     Route: 065
     Dates: start: 20220802, end: 202211
  2. ETOPOSIDE [Suspect]
     Active Substance: ETOPOSIDE
     Indication: Double hit lymphoma
     Route: 065
     Dates: start: 20220802, end: 202211
  3. PREDNISOLONE [Suspect]
     Active Substance: PREDNISOLONE
     Indication: Double hit lymphoma
     Route: 065
     Dates: start: 20220802, end: 202211
  4. VINCRISTINE [Suspect]
     Active Substance: VINCRISTINE
     Indication: Double hit lymphoma
     Route: 065
     Dates: start: 20220802, end: 202211
  5. CYCLOPHOSPHAMIDE [Suspect]
     Active Substance: CYCLOPHOSPHAMIDE
     Indication: Double hit lymphoma
     Route: 065
     Dates: start: 20220802, end: 202211
  6. DOXORUBICIN [Suspect]
     Active Substance: DOXORUBICIN
     Indication: Double hit lymphoma
     Route: 065
     Dates: start: 20220802, end: 202211
  7. DEXAMETHASONE [Suspect]
     Active Substance: DEXAMETHASONE
     Indication: Double hit lymphoma
     Route: 065
     Dates: start: 202211, end: 202302
  8. CYTARABINE [Suspect]
     Active Substance: CYTARABINE
     Indication: Double hit lymphoma
     Route: 065
     Dates: start: 202211, end: 202302
  9. CISPLATIN [Suspect]
     Active Substance: CISPLATIN
     Indication: Double hit lymphoma
     Route: 065
     Dates: start: 202211, end: 202302
  10. GEMCITABINE [Suspect]
     Active Substance: GEMCITABINE
     Indication: Double hit lymphoma
     Route: 065
     Dates: start: 202303, end: 202304
  11. OXALIPLATIN [Suspect]
     Active Substance: OXALIPLATIN
     Indication: Double hit lymphoma
     Route: 065
     Dates: start: 202303, end: 202304

REACTIONS (4)
  - Ill-defined disorder [Unknown]
  - Disease progression [Unknown]
  - Neuropathy peripheral [Unknown]
  - Type 2 diabetes mellitus [Unknown]
